FAERS Safety Report 7988713-6 (Version None)
Quarter: 2011Q4

REPORT INFORMATION
  Report Type: 
  Country: None (occurrence: None)
  Receive Date: 20111218
  Receipt Date: 20111205
  Transmission Date: 20120403
  Serious: Yes (Other)
  Sender: FDA-Public Use
  Company Number: FR-MYLANLABS-2011S1025414

PATIENT
  Age: 1 Year
  Sex: Male

DRUGS (2)
  1. ETOPOSIDE [Concomitant]
     Indication: BONE SARCOMA
     Route: 065
  2. METHOTREXATE [Suspect]
     Indication: BONE SARCOMA
     Dosage: HIGH DOSE
     Route: 065

REACTIONS (2)
  - ENCEPHALOPATHY [None]
  - MENTAL IMPAIRMENT [None]
